FAERS Safety Report 5683063-5 (Version None)
Quarter: 2008Q1

REPORT INFORMATION
  Report Type: 
  Country: None (occurrence: None)
  Receive Date: 20080327
  Receipt Date: 20080318
  Transmission Date: 20080703
  Serious: Yes (Other)
  Sender: FDA-Public Use
  Company Number: JP-JNJFOC-20080202439

PATIENT
  Sex: Male

DRUGS (14)
  1. RISPERDAL [Suspect]
     Indication: RESTLESSNESS
     Route: 048
  2. RISPERDAL [Suspect]
     Indication: SCHIZOPHRENIA
     Route: 048
  3. RISPERDAL [Suspect]
     Route: 048
  4. ABILIFY [Suspect]
     Indication: DRUG USE FOR UNKNOWN INDICATION
     Route: 048
  5. FLUNITRAZEPAM [Suspect]
     Indication: DRUG USE FOR UNKNOWN INDICATION
     Route: 048
  6. DORAL [Suspect]
     Indication: DRUG USE FOR UNKNOWN INDICATION
     Route: 048
  7. CYSVON [Suspect]
     Indication: DRUG USE FOR UNKNOWN INDICATION
     Route: 048
  8. SOLANAX [Concomitant]
     Route: 048
  9. VEGETAMIN-A [Concomitant]
  10. FLUNITRAZEPAM [Concomitant]
  11. DEPAS [Concomitant]
     Route: 048
  12. CHLORPROMAZINE HCL [Concomitant]
     Route: 048
  13. AKINETON [Concomitant]
     Route: 048
  14. VEGETAMIN-B [Concomitant]

REACTIONS (5)
  - CONVULSION [None]
  - HYPONATRAEMIA [None]
  - RHABDOMYOLYSIS [None]
  - THIRST [None]
  - WATER INTOXICATION [None]
